FAERS Safety Report 18980087 (Version 2)
Quarter: 2021Q1

REPORT INFORMATION
  Report Type: Spontaneous
  Country: US (occurrence: US)
  Receive Date: 20210308
  Receipt Date: 20210319
  Transmission Date: 20210420
  Serious: No
  Sender: FDA-Public Use
  Company Number: US-GLAXOSMITHKLINE-US2021057696

PATIENT
  Sex: Female

DRUGS (1)
  1. BENLYSTA [Suspect]
     Active Substance: BELIMUMAB
     Indication: SYSTEMIC LUPUS ERYTHEMATOSUS
     Dosage: UNK
     Route: 042
     Dates: start: 2015, end: 2016

REACTIONS (8)
  - Headache [Recovered/Resolved]
  - Psychotic disorder [Recovered/Resolved]
  - Mood altered [Unknown]
  - Anxiety [Recovered/Resolved]
  - Hormone level abnormal [Unknown]
  - Irritability [Unknown]
  - Palpitations [Recovered/Resolved]
  - Adverse drug reaction [Unknown]
